FAERS Safety Report 13558212 (Version 1)
Quarter: 2017Q2

REPORT INFORMATION
  Report Type: Other
  Country: None (occurrence: TW)
  Receive Date: 20170517
  Receipt Date: 20170517
  Transmission Date: 20170830
  Serious: Yes (Other)
  Sender: FDA-Public Use
  Company Number: TW-INTERNATIONAL MEDICATION SYSTEMS, LIMITED-2020912

PATIENT
  Age: 69 Year
  Sex: Female
  Weight: 60 kg

DRUGS (5)
  1. EPINEPHRINE. [Suspect]
     Active Substance: EPINEPHRINE
  2. BUPIVACAINE 0.5 % (5MG/ML) [Suspect]
     Active Substance: BUPIVACAINE
     Route: 039
  3. ROPIVACAINE HCL [Suspect]
     Active Substance: ROPIVACAINE HYDROCHLORIDE
     Route: 008
  4. FENTANYL. [Suspect]
     Active Substance: FENTANYL
     Route: 008
  5. LIDOCAINE 2% [Suspect]
     Active Substance: LIDOCAINE
     Indication: LOCAL ANAESTHESIA
     Route: 008

REACTIONS (2)
  - Neurotoxicity [Recovered/Resolved]
  - Cauda equina syndrome [Recovered/Resolved]
